FAERS Safety Report 13123728 (Version 2)
Quarter: 2017Q2

REPORT INFORMATION
  Report Type: Spontaneous
  Country: FR (occurrence: FR)
  Receive Date: 20170117
  Receipt Date: 20170426
  Transmission Date: 20170830
  Serious: Yes (Hospitalization)
  Sender: FDA-Public Use
  Company Number: FR-ROCHE-1880312

PATIENT
  Age: 73 Year
  Sex: Female

DRUGS (9)
  1. PACLITAXEL. [Suspect]
     Active Substance: PACLITAXEL
     Indication: BREAST CANCER METASTATIC
     Route: 042
     Dates: start: 201610, end: 20161216
  2. TEMESTA (FRANCE) [Concomitant]
     Active Substance: LORAZEPAM
  3. ZOPICLONE [Concomitant]
     Active Substance: ZOPICLONE
  4. XANAX [Concomitant]
     Active Substance: ALPRAZOLAM
  5. PRAVASTATIN. [Concomitant]
     Active Substance: PRAVASTATIN
  6. HERCEPTIN [Suspect]
     Active Substance: TRASTUZUMAB
     Indication: BREAST CANCER METASTATIC
     Route: 042
     Dates: start: 201610
  7. PERJETA [Suspect]
     Active Substance: PERTUZUMAB
     Indication: BREAST CANCER METASTATIC
     Route: 042
     Dates: start: 201610
  8. SECTRAL [Concomitant]
     Active Substance: ACEBUTOLOL HYDROCHLORIDE
  9. ACEBUTOLOL [Concomitant]
     Active Substance: ACEBUTOLOL

REACTIONS (1)
  - Vasculitis [Recovered/Resolved]

NARRATIVE: CASE EVENT DATE: 20161217
